FAERS Safety Report 22276072 (Version 1)
Quarter: 2023Q2

REPORT INFORMATION
  Report Type: Spontaneous
  Country: US (occurrence: US)
  Receive Date: 20230502
  Receipt Date: 20230502
  Transmission Date: 20230722
  Serious: No
  Sender: FDA-Public Use
  Company Number: US-AERIE-2022-002643

PATIENT

DRUGS (1)
  1. ROCKLATAN [Suspect]
     Active Substance: LATANOPROST\NETARSUDIL MESYLATE
     Indication: Glaucoma
     Dosage: 1 GTT, OS, QD
     Route: 047
     Dates: start: 20211214, end: 20220120

REACTIONS (3)
  - Cornea verticillata [Recovering/Resolving]
  - Vision blurred [Recovered/Resolved]
  - Conjunctival haemorrhage [Recovered/Resolved]
